FAERS Safety Report 4941274-8 (Version None)
Quarter: 2006Q1

REPORT INFORMATION
  Report Type: 
  Country: None (occurrence: None)
  Receive Date: 20060313
  Receipt Date: 20050607
  Transmission Date: 20060701
  Serious: Yes (Hospitalization, Disabling)
  Sender: FDA-Public Use
  Company Number: US-MERCK-0506USA01113

PATIENT
  Age: 68 Year
  Sex: Male
  Weight: 84 kg

DRUGS (2)
  1. VIOXX [Suspect]
     Indication: ARTHRITIS
     Route: 048
     Dates: start: 20020101, end: 20030101
  2. TYLENOL (CAPLET) [Concomitant]
     Route: 065

REACTIONS (18)
  - ACUTE MYOCARDIAL INFARCTION [None]
  - ANGINA PECTORIS [None]
  - ANGINA UNSTABLE [None]
  - AORTIC ARTERIOSCLEROSIS [None]
  - AORTIC VALVE INCOMPETENCE [None]
  - ATRIAL HYPERTROPHY [None]
  - CORONARY ARTERY DISEASE [None]
  - CORONARY ARTERY OCCLUSION [None]
  - DIZZINESS [None]
  - DYSLIPIDAEMIA [None]
  - HIATUS HERNIA [None]
  - ISCHAEMIA [None]
  - LIMB INJURY [None]
  - MITRAL VALVE INCOMPETENCE [None]
  - NEPHROLITHIASIS [None]
  - PRODUCTIVE COUGH [None]
  - PROSTATIC DISORDER [None]
  - TRICUSPID VALVE INCOMPETENCE [None]
